FAERS Safety Report 5095197-7 (Version None)
Quarter: 2006Q3

REPORT INFORMATION
  Report Type: 
  Country: None (occurrence: None)
  Receive Date: 20060901
  Receipt Date: 20060620
  Transmission Date: 20061208
  Serious: Yes (Other)
  Sender: FDA-Public Use
  Company Number: BE-GLAXOSMITHKLINE-B0428617A

PATIENT
  Age: 38 Year
  Sex: Female
  Weight: 50 kg

DRUGS (1)
  1. ZYBAN [Suspect]
     Dosage: 1TAB PER DAY
     Route: 048
     Dates: start: 20060619, end: 20060620

REACTIONS (14)
  - ASTHENIA [None]
  - DRY MOUTH [None]
  - EYE DISORDER [None]
  - HALLUCINATION, VISUAL [None]
  - ILL-DEFINED DISORDER [None]
  - MALAISE [None]
  - MUSCLE DISORDER [None]
  - NAUSEA [None]
  - PARAESTHESIA [None]
  - PARAESTHESIA ORAL [None]
  - PARALYSIS [None]
  - SENSATION OF HEAVINESS [None]
  - SPEECH DISORDER [None]
  - TREMOR [None]
